FAERS Safety Report 24953951 (Version 1)
Quarter: 2025Q1

REPORT INFORMATION
  Report Type: Spontaneous
  Country: PK (occurrence: PK)
  Receive Date: 20250211
  Receipt Date: 20250211
  Transmission Date: 20250408
  Serious: No
  Sender: ALKEM
  Company Number: PK-ALKEM LABORATORIES LIMITED-PK-ALKEM-2024-03459

PATIENT

DRUGS (1)
  1. TRIAMCINOLONE ACETONIDE [Suspect]
     Active Substance: TRIAMCINOLONE ACETONIDE
     Indication: Diabetic retinal oedema
     Route: 042

REACTIONS (1)
  - Intraocular pressure increased [Recovered/Resolved]
